FAERS Safety Report 20469227 (Version 2)
Quarter: 2022Q1

REPORT INFORMATION
  Report Type: Report from Study
  Country: US (occurrence: US)
  Receive Date: 20220214
  Receipt Date: 20220228
  Transmission Date: 20220424
  Serious: No
  Sender: FDA-Public Use
  Company Number: US-ORG100014127-2021001546

PATIENT
  Age: 49 Year
  Sex: Female

DRUGS (2)
  1. LYSODREN [Suspect]
     Active Substance: MITOTANE
     Dosage: MUTIPLE DAILY DOSES: 3G OR 4.5G DAILY
     Route: 048
     Dates: start: 20210729
  2. METOPIRONE [Suspect]
     Active Substance: METYRAPONE

REACTIONS (2)
  - Nausea [Not Recovered/Not Resolved]
  - Off label use [Not Recovered/Not Resolved]

NARRATIVE: CASE EVENT DATE: 20211215
